FAERS Safety Report 4694201-5 (Version None)
Quarter: 2005Q2

REPORT INFORMATION
  Report Type: 
  Country: None (occurrence: None)
  Receive Date: 20050616
  Receipt Date: 20050616
  Transmission Date: 20051028
  Serious: Yes (Disabling)
  Sender: FDA-Public Use
  Company Number: None

PATIENT
  Age: 59 Year
  Sex: Male
  Weight: 70.3075 kg

DRUGS (1)
  1. VIAGRA [Suspect]
     Dosage: 50 MG

REACTIONS (1)
  - BLINDNESS UNILATERAL [None]
